FAERS Safety Report 16826362 (Version 1)
Quarter: 2019Q3

REPORT INFORMATION
  Report Type: Spontaneous
  Country: US (occurrence: US)
  Receive Date: 20190729
  Receipt Date: 20190729
  Transmission Date: 20191005
  Serious: No
  Sender: FDA-Public Use
  Company Number: None

PATIENT
  Age: 64 Year
  Sex: Female

DRUGS (3)
  1. MAVYRET [Suspect]
     Active Substance: GLECAPREVIR\PIBRENTASVIR
     Indication: HEPATITIS C
     Dates: start: 201906
  2. AMLODIIPINE [Concomitant]
  3. CARVEDIOL [Concomitant]
     Active Substance: CARVEDILOL

REACTIONS (2)
  - Urinary tract infection [None]
  - Insomnia [None]

NARRATIVE: CASE EVENT DATE: 20190726
